FAERS Safety Report 18729695 (Version 1)
Quarter: 2021Q1

REPORT INFORMATION
  Report Type: Spontaneous
  Country: US (occurrence: US)
  Receive Date: 20210112
  Receipt Date: 20210112
  Transmission Date: 20210419
  Serious: Yes (Hospitalization)
  Sender: FDA-Public Use
  Company Number: US-BRAINTREE LABORATORIES, INC.-2020BTE04933

PATIENT
  Age: 65 Year
  Sex: Female
  Weight: 65.76 kg

DRUGS (7)
  1. CITRACAL PLUS VITAMIN D3 (400MG CALCIUM; 500 IUS VITAMIN D3) [Concomitant]
     Dosage: UNK
  2. DAILY MULTIVITAMIN PACKET (WITH ABOUT 4 CAPSULES IN THE PACKET, BRAIN [Concomitant]
  3. SUPREP BOWEL PREP [Suspect]
     Active Substance: MAGNESIUM SULFATE\POTASSIUM SULFATE\SODIUM SULFATE
     Indication: COLONOSCOPY
     Dosage: 2 X 6 OZ. BOTTLES, ONCE
     Route: 048
     Dates: start: 20201210, end: 20201211
  4. INDOLE?3?CARBINOL [Concomitant]
     Active Substance: DIETARY SUPPLEMENT
     Dosage: 200 MG, 1X/DAY
  5. QUERCETIN [Concomitant]
     Active Substance: QUERCETIN
     Dosage: 500 MG, 1X/DAY
  6. ZINC. [Concomitant]
     Active Substance: ZINC
     Dosage: 50 MG, 1X/DAY
  7. ZYRTEC [Concomitant]
     Active Substance: CETIRIZINE HYDROCHLORIDE
     Dosage: UNK, AS NEEDED

REACTIONS (4)
  - Anxiety [Unknown]
  - Heart rate increased [Unknown]
  - Pneumonia aspiration [Recovering/Resolving]
  - Oxygen saturation decreased [Recovered/Resolved]

NARRATIVE: CASE EVENT DATE: 20201211
